FAERS Safety Report 14409730 (Version 1)
Quarter: 2018Q1

REPORT INFORMATION
  Report Type: Spontaneous
  Country: US (occurrence: US)
  Receive Date: 20180119
  Receipt Date: 20180119
  Transmission Date: 20180509
  Serious: Yes (Other)
  Sender: FDA-Public Use
  Company Number: US-009507513-1801USA003268

PATIENT
  Age: 23 Year
  Sex: Female
  Weight: 97.96 kg

DRUGS (1)
  1. NEXPLANON [Suspect]
     Active Substance: ETONOGESTREL
     Indication: CONTRACEPTION
     Dosage: 1 DF, 3 YEARS IN
     Route: 059
     Dates: start: 20170826

REACTIONS (8)
  - Amnesia [Unknown]
  - Pregnancy with implant contraceptive [Recovered/Resolved]
  - Abortion spontaneous [Unknown]
  - Fatigue [Unknown]
  - Anxiety [Unknown]
  - Chest pain [Unknown]
  - Implant site pain [Unknown]
  - Paranoia [Unknown]
